FAERS Safety Report 5979852-X (Version None)
Quarter: 2008Q4

REPORT INFORMATION
  Report Type: 
  Country: None (occurrence: None)
  Receive Date: 20081205
  Receipt Date: 20081125
  Transmission Date: 20090506
  Serious: Yes (Other)
  Sender: FDA-Public Use
  Company Number: ESWYE481102AUG06

PATIENT
  Age: 36 Year
  Sex: Female

DRUGS (3)
  1. DOBUPAL [Suspect]
     Indication: OBSESSIVE-COMPULSIVE DISORDER
     Route: 048
     Dates: start: 20060425
  2. DOBUPAL [Suspect]
     Route: 048
  3. AREMIS [Suspect]
     Indication: OBSESSIVE-COMPULSIVE DISORDER
     Route: 048
     Dates: start: 20050616, end: 20060424

REACTIONS (2)
  - HYPERTRICHOSIS [None]
  - WEIGHT INCREASED [None]
